FAERS Safety Report 9622601 (Version 1)
Quarter: 2013Q4

REPORT INFORMATION
  Report Type: Spontaneous
  Country: US (occurrence: US)
  Receive Date: 20131015
  Receipt Date: 20131015
  Transmission Date: 20140711
  Serious: No
  Sender: FDA-Public Use
  Company Number: US-PURDUE-USA-2012-0086412

PATIENT
  Sex: Male

DRUGS (3)
  1. BUTRANS [Suspect]
     Indication: PAIN
     Dosage: 10 MCG/HR, UNK
     Route: 062
     Dates: start: 20120427
  2. LYRICA [Concomitant]
     Indication: PRODUCT USED FOR UNKNOWN INDICATION
     Dosage: UNK
  3. VICOPROFEN [Concomitant]
     Indication: ANALGESIC THERAPY
     Dosage: 1/2 7.5 MG

REACTIONS (5)
  - Therapeutic response delayed [Unknown]
  - Somnolence [Unknown]
  - Nausea [Unknown]
  - Application site pruritus [Unknown]
  - Paraesthesia [Unknown]
